FAERS Safety Report 7593675-X (Version None)
Quarter: 2011Q3

REPORT INFORMATION
  Report Type: 
  Country: None (occurrence: None)
  Receive Date: 20110706
  Receipt Date: 20110628
  Transmission Date: 20111222
  Serious: Yes (Hospitalization)
  Sender: FDA-Public Use
  Company Number: DE-AMGEN-UK343407

PATIENT
  Age: 49 Year
  Sex: Male

DRUGS (2)
  1. CINACALCET HYDROCHLORIDE [Suspect]
     Indication: HYPERPARATHYROIDISM SECONDARY
     Dosage: UNK UNK, BID
     Route: 048
     Dates: start: 20061126, end: 20090416
  2. PLACEBO [Suspect]
     Indication: HYPERPARATHYROIDISM SECONDARY
     Dosage: UNK UNK, BID
     Route: 048
     Dates: start: 20061126, end: 20090416

REACTIONS (2)
  - PARATHYROIDECTOMY [None]
  - HYPERPARATHYROIDISM [None]
